FAERS Safety Report 16168787 (Version 1)
Quarter: 2019Q2

REPORT INFORMATION
  Report Type: Report from Study
  Country: US (occurrence: US)
  Receive Date: 20190408
  Receipt Date: 20190408
  Transmission Date: 20190711
  Serious: No
  Sender: FDA-Public Use
  Company Number: US-ROCHE-2297548

PATIENT
  Age: 58 Year
  Sex: Female

DRUGS (4)
  1. OCREVUS [Suspect]
     Active Substance: OCRELIZUMAB
     Dosage: SPILT DOSE
     Route: 065
     Dates: start: 20181213
  2. OCREVUS [Suspect]
     Active Substance: OCRELIZUMAB
     Dosage: FULL DOSE, ONGOING: YES
     Route: 065
  3. OCREVUS [Suspect]
     Active Substance: OCRELIZUMAB
     Indication: MULTIPLE SCLEROSIS
     Dosage: SPLIT DOSE ;ONGOING: NO
     Route: 065
     Dates: start: 20181129
  4. AMOXICILLIN. [Concomitant]
     Active Substance: AMOXICILLIN
     Indication: SINUSITIS
     Dosage: YES
     Route: 065
     Dates: start: 20190328

REACTIONS (3)
  - Ill-defined disorder [Unknown]
  - Paraesthesia [Recovering/Resolving]
  - Sinusitis [Unknown]

NARRATIVE: CASE EVENT DATE: 20181213
